FAERS Safety Report 26064024 (Version 1)
Quarter: 2025Q4

REPORT INFORMATION
  Report Type: Spontaneous
  Country: IN (occurrence: IN)
  Receive Date: 20251119
  Receipt Date: 20251119
  Transmission Date: 20260119
  Serious: Yes (Hospitalization)
  Sender: MYLAN
  Company Number: IN-MYLANLABS-2025M1097133

PATIENT
  Age: 29 Year
  Sex: Female

DRUGS (12)
  1. ACETAMINOPHEN [Suspect]
     Active Substance: ACETAMINOPHEN
     Indication: Pain
     Dosage: 500 MILLIGRAM
  2. ACETAMINOPHEN [Suspect]
     Active Substance: ACETAMINOPHEN
     Indication: Arthralgia
     Dosage: 500 MILLIGRAM
     Route: 065
  3. ACETAMINOPHEN [Suspect]
     Active Substance: ACETAMINOPHEN
     Dosage: 500 MILLIGRAM
     Route: 065
  4. ACETAMINOPHEN [Suspect]
     Active Substance: ACETAMINOPHEN
     Dosage: 500 MILLIGRAM
  5. OFLOXACIN [Suspect]
     Active Substance: OFLOXACIN
     Indication: Pain
     Dosage: 200 MILLIGRAM
  6. OFLOXACIN [Suspect]
     Active Substance: OFLOXACIN
     Indication: Arthralgia
     Dosage: 200 MILLIGRAM
     Route: 065
  7. OFLOXACIN [Suspect]
     Active Substance: OFLOXACIN
     Dosage: 200 MILLIGRAM
     Route: 065
  8. OFLOXACIN [Suspect]
     Active Substance: OFLOXACIN
     Dosage: 200 MILLIGRAM
  9. CEFIXIME [Suspect]
     Active Substance: CEFIXIME
     Indication: Pain
     Dosage: 200 MILLIGRAM
  10. CEFIXIME [Suspect]
     Active Substance: CEFIXIME
     Indication: Arthralgia
     Dosage: 200 MILLIGRAM
     Route: 065
  11. CEFIXIME [Suspect]
     Active Substance: CEFIXIME
     Dosage: 200 MILLIGRAM
     Route: 065
  12. CEFIXIME [Suspect]
     Active Substance: CEFIXIME
     Dosage: 200 MILLIGRAM

REACTIONS (3)
  - Stevens-Johnson syndrome [Recovering/Resolving]
  - Toxic epidermal necrolysis [Recovering/Resolving]
  - Off label use [Unknown]
